FAERS Safety Report 13625046 (Version 14)
Quarter: 2019Q2

REPORT INFORMATION
  Report Type: Spontaneous
  Country: CA (occurrence: CA)
  Receive Date: 20170608
  Receipt Date: 20190402
  Transmission Date: 20190711
  Serious: Yes (Other)
  Sender: FDA-Public Use
  Company Number: CA-HORIZON-VIM-0072-2017

PATIENT
  Age: 44 Year
  Sex: Female
  Weight: 63 kg

DRUGS (35)
  1. VIMOVO [Suspect]
     Active Substance: ESOMEPRAZOLE MAGNESIUM\NAPROXEN
     Indication: PRODUCT USE IN UNAPPROVED INDICATION
     Dosage: UNKNOWN DOSE
     Route: 048
  2. ALENDRONIC ACID [Suspect]
     Active Substance: ALENDRONIC ACID
     Indication: PRODUCT USE IN UNAPPROVED INDICATION
  3. SEPTRA [Suspect]
     Active Substance: SULFAMETHOXAZOLE\TRIMETHOPRIM
     Indication: PRODUCT USE IN UNAPPROVED INDICATION
     Dates: start: 20071221, end: 20180211
  4. SULFASALAZINE. [Suspect]
     Active Substance: SULFASALAZINE
     Indication: RHEUMATOID ARTHRITIS
     Dosage: 1 G, DAILY
     Route: 048
     Dates: start: 20071221, end: 20080211
  5. APO-PREDNISONE [Suspect]
     Active Substance: PREDNISONE
     Indication: PRODUCT USE IN UNAPPROVED INDICATION
     Dosage: 15 MG DAILY
  6. ACETAMINOPHEN W/OXYCODONE HYDROCHLORIDE [Suspect]
     Active Substance: ACETAMINOPHEN\OXYCODONE HYDROCHLORIDE
     Indication: PRODUCT USE IN UNAPPROVED INDICATION
  7. SULFASALAZINE. [Suspect]
     Active Substance: SULFASALAZINE
     Indication: RHEUMATOID ARTHRITIS
     Route: 048
  8. CELEBREX [Concomitant]
     Active Substance: CELECOXIB
     Indication: PRODUCT USED FOR UNKNOWN INDICATION
  9. MELOXICAM. [Suspect]
     Active Substance: MELOXICAM
     Indication: PRODUCT USE IN UNAPPROVED INDICATION
     Dosage: 150 MG DAILY
  10. FOLIC ACID. [Concomitant]
     Active Substance: FOLIC ACID
  11. RANITIDINE. [Suspect]
     Active Substance: RANITIDINE
     Indication: PRODUCT USE IN UNAPPROVED INDICATION
     Dosage: 300 MG QD
     Route: 048
     Dates: start: 2012
  12. DEPO-MEDROL [Suspect]
     Active Substance: METHYLPREDNISOLONE ACETATE
     Indication: RHEUMATOID ARTHRITIS
     Route: 014
  13. HUMIRA [Suspect]
     Active Substance: ADALIMUMAB
     Indication: DRUG THERAPY
     Dosage: 40 MG UNKNOWN, SOLUTION FOR INJECTION
     Route: 058
     Dates: start: 201008, end: 201312
  14. TOFACITINIB [Suspect]
     Active Substance: TOFACITINIB
     Indication: RHEUMATOID ARTHRITIS
     Dosage: 5 MG TWO TIMES DAILY
     Route: 048
     Dates: end: 20140927
  15. PANTOLOC [Suspect]
     Active Substance: PANTOPRAZOLE SODIUM
     Indication: PRODUCT USE IN UNAPPROVED INDICATION
     Dosage: DAILY
     Route: 048
  16. AMITRIPTYLINE HYDROCHLORIDE. [Suspect]
     Active Substance: AMITRIPTYLINE HYDROCHLORIDE
     Indication: PRODUCT USE IN UNAPPROVED INDICATION
     Dosage: 75 MG DAILY
     Route: 048
     Dates: start: 2011
  17. IMURAN [Suspect]
     Active Substance: AZATHIOPRINE
     Indication: PRODUCT USE IN UNAPPROVED INDICATION
     Dosage: 150 MG
  18. PREDNISONE. [Suspect]
     Active Substance: PREDNISONE
     Indication: RHEUMATOID ARTHRITIS
     Dosage: 15 MG QD
  19. PLAQUENIL [Concomitant]
     Active Substance: HYDROXYCHLOROQUINE SULFATE
  20. APO-AMITRIPTYLINE [Suspect]
     Active Substance: AMITRIPTYLINE HYDROCHLORIDE
     Indication: PRODUCT USE IN UNAPPROVED INDICATION
     Dosage: 75 MG QD
     Route: 048
  21. TEVA-OXYCOCET [Suspect]
     Active Substance: ACETAMINOPHEN\OXYCODONE HYDROCHLORIDE
     Indication: PRODUCT USE IN UNAPPROVED INDICATION
  22. BACTRIM [Suspect]
     Active Substance: SULFAMETHOXAZOLE\TRIMETHOPRIM
     Indication: PRODUCT USE IN UNAPPROVED INDICATION
  23. METHOTREXATE. [Suspect]
     Active Substance: METHOTREXATE
     Indication: RHEUMATOID ARTHRITIS
     Dosage: 20 MG WEEKLY, RESTARTED 2008
     Route: 048
     Dates: start: 2007, end: 2008
  24. LYRICA [Suspect]
     Active Substance: PREGABALIN
     Indication: RHEUMATOID ARTHRITIS
     Dosage: 300 MG QD, 150 MG BID
     Route: 048
  25. RATIO-OXYCOCET [Suspect]
     Active Substance: ACETAMINOPHEN\OXYCODONE HYDROCHLORIDE
     Indication: PRODUCT USE IN UNAPPROVED INDICATION
  26. TOFACITINIB [Suspect]
     Active Substance: TOFACITINIB
     Indication: RHEUMATOID ARTHRITIS
     Dosage: 5 MG BID AND 10 MG DAILY
     Route: 048
     Dates: start: 20140927
  27. APO-NAPROXEN [Suspect]
     Active Substance: NAPROXEN
     Indication: PRODUCT USE IN UNAPPROVED INDICATION
     Dosage: 500 MG BID
     Route: 048
  28. ESOMEPRAZOLE MAGNESIUM. [Suspect]
     Active Substance: ESOMEPRAZOLE MAGNESIUM
     Indication: PRODUCT USE IN UNAPPROVED INDICATION
     Route: 048
  29. RANITIDINE. [Suspect]
     Active Substance: RANITIDINE
     Indication: PRODUCT USED FOR UNKNOWN INDICATION
     Route: 048
  30. APO-ALENDRONATE [Suspect]
     Active Substance: ALENDRONATE SODIUM
     Indication: PRODUCT USED FOR UNKNOWN INDICATION
  31. NAPROXEN. [Suspect]
     Active Substance: NAPROXEN
     Indication: PRODUCT USE IN UNAPPROVED INDICATION
     Dosage: 500 MG BID, 250 MG BID, 1000 MG BID
     Route: 048
     Dates: start: 2011
  32. ENBREL [Suspect]
     Active Substance: ETANERCEPT
     Indication: RHEUMATOID ARTHRITIS
     Dosage: 50 MG ONCE WEEKLY
     Route: 058
     Dates: start: 200812, end: 201007
  33. METHOTREXATE. [Suspect]
     Active Substance: METHOTREXATE
     Indication: RHEUMATOID ARTHRITIS
     Route: 058
  34. APO-MELOXICAM [Suspect]
     Active Substance: MELOXICAM
     Indication: PRODUCT USE IN UNAPPROVED INDICATION
  35. APO-RANITIDINE [Suspect]
     Active Substance: RANITIDINE
     Indication: PRODUCT USE IN UNAPPROVED INDICATION
     Dosage: 150 MG BID
     Route: 048

REACTIONS (55)
  - Atelectasis [Unknown]
  - Nodule [Unknown]
  - Visual impairment [Unknown]
  - Malaise [Unknown]
  - Contraindicated product administered [Unknown]
  - Haemoglobin decreased [Unknown]
  - Peripheral swelling [Unknown]
  - Ocular hyperaemia [Unknown]
  - Eye pain [Unknown]
  - Feeling jittery [Unknown]
  - Lung disorder [Unknown]
  - Tenderness [Unknown]
  - Wheezing [Unknown]
  - Antinuclear antibody positive [Unknown]
  - Conjunctivitis [Unknown]
  - Nausea [Unknown]
  - Rash [Unknown]
  - Erythema [Unknown]
  - Eye irritation [Unknown]
  - Pleuritic pain [Unknown]
  - Tenosynovitis stenosans [Unknown]
  - Therapeutic product effect decreased [Unknown]
  - Red blood cell count decreased [Unknown]
  - Rheumatoid arthritis [Unknown]
  - Joint swelling [Unknown]
  - Dyspnoea [Unknown]
  - Synovial cyst [Unknown]
  - Flank pain [Unknown]
  - Pain [Unknown]
  - Interstitial lung disease [Unknown]
  - Photophobia [Unknown]
  - Dry mouth [Unknown]
  - Infection [Unknown]
  - Swelling face [Unknown]
  - Scleritis [Unknown]
  - Ulcer [Unknown]
  - Pneumonia [Unknown]
  - Pruritus [Unknown]
  - Musculoskeletal pain [Unknown]
  - Bursitis [Unknown]
  - Crepitations [Unknown]
  - Cushingoid [Unknown]
  - Fibromyalgia [Unknown]
  - Joint effusion [Unknown]
  - Musculoskeletal stiffness [Unknown]
  - Synovial fluid analysis [Unknown]
  - Arthralgia [Unknown]
  - Abdominal pain [Unknown]
  - Pain in extremity [Unknown]
  - Rheumatoid nodule [Unknown]
  - Thrombosis [Unknown]
  - Neoplasm malignant [Unknown]
  - Dry eye [Unknown]
  - Impaired work ability [Unknown]
  - Drug ineffective [Unknown]

NARRATIVE: CASE EVENT DATE: 2008
